FAERS Safety Report 6147939-7 (Version None)
Quarter: 2009Q2

REPORT INFORMATION
  Report Type: 
  Country: None (occurrence: None)
  Receive Date: 20090408
  Receipt Date: 20090331
  Transmission Date: 20091009
  Serious: Yes (Other)
  Sender: FDA-Public Use
  Company Number: PHHY2009US12046

PATIENT
  Age: 70 Year
  Sex: Female

DRUGS (2)
  1. ZOLEDRONIC ACID [Suspect]
     Dosage: DAILY
     Dates: end: 20060801
  2. PAMIDRONATE DISODIUM [Suspect]
     Dosage: DAILY
     Dates: end: 20060801

REACTIONS (6)
  - DENTURE WEARER [None]
  - FAILURE OF IMPLANT [None]
  - GINGIVAL SWELLING [None]
  - PAIN [None]
  - TOOTH ABSCESS [None]
  - TOOTH EXTRACTION [None]
